FAERS Safety Report 7490566-X (Version None)
Quarter: 2011Q2

REPORT INFORMATION
  Report Type: 
  Country: None (occurrence: None)
  Receive Date: 20110519
  Receipt Date: 20110517
  Transmission Date: 20111010
  Serious: Yes (Other)
  Sender: FDA-Public Use
  Company Number: HR-SANOFI-AVENTIS-2011SA030361

PATIENT
  Age: 58 Year
  Sex: Female

DRUGS (3)
  1. INDAPAMIDE [Suspect]
     Indication: HYPERTENSION
     Route: 048
     Dates: start: 20110418
  2. ORMIDOL [Concomitant]
     Dates: start: 20100101
  3. LACIPIL [Concomitant]
     Dates: start: 20100101

REACTIONS (2)
  - ANGIOEDEMA [None]
  - SWELLING FACE [None]
